FAERS Safety Report 12172683 (Version 1)
Quarter: 2016Q1

REPORT INFORMATION
  Report Type: Spontaneous
  Country: US (occurrence: US)
  Receive Date: 20160311
  Receipt Date: 20160311
  Transmission Date: 20160526
  Serious: No
  Sender: FDA-Public Use
  Company Number: US-BAYER-2016-040380

PATIENT
  Age: 84 Year
  Sex: Female
  Weight: 40.82 kg

DRUGS (1)
  1. MIRALAX [Suspect]
     Active Substance: POLYETHYLENE GLYCOL 3350
     Dosage: 1/2 DF, QD
     Route: 048
     Dates: start: 20160225

REACTIONS (3)
  - Product use issue [None]
  - Feeding disorder [None]
  - Dysgeusia [None]

NARRATIVE: CASE EVENT DATE: 201602
